FAERS Safety Report 9225260 (Version 1)
Quarter: 2013Q2

REPORT INFORMATION
  Report Type: Spontaneous
  Country: TH (occurrence: TH)
  Receive Date: 20130411
  Receipt Date: 20130411
  Transmission Date: 20140414
  Serious: Yes (Other)
  Sender: FDA-Public Use
  Company Number: PHHY2013TH031351

PATIENT
  Sex: Female
  Weight: 43.3 kg

DRUGS (1)
  1. GLIVEC [Suspect]
     Dosage: 400 MG, UNK

REACTIONS (2)
  - Retinal detachment [Unknown]
  - Retinal haemorrhage [Unknown]
